FAERS Safety Report 10356963 (Version 1)
Quarter: 2014Q3

REPORT INFORMATION
  Report Type: Spontaneous
  Country: FR (occurrence: FR)
  Receive Date: 20140801
  Receipt Date: 20140801
  Transmission Date: 20150326
  Serious: Yes (Hospitalization)
  Sender: FDA-Public Use
  Company Number: FR-ELI_LILLY_AND_COMPANY-FR201407007630

PATIENT
  Age: 89 Year
  Sex: Female

DRUGS (7)
  1. HUMALOG [Suspect]
     Active Substance: INSULIN LISPRO
     Indication: PRODUCT USED FOR UNKNOWN INDICATION
     Dosage: 47 U, BID
     Route: 058
  2. TAHOR [Concomitant]
     Active Substance: ATORVASTATIN CALCIUM
  3. VASTAREL [Concomitant]
     Active Substance: TRIMETAZIDINE DIHYDROCHLORIDE
  4. ISOPTIN [Concomitant]
     Active Substance: VERAPAMIL HYDROCHLORIDE
  5. COVERSYL                           /00790702/ [Concomitant]
     Active Substance: PERINDOPRIL
  6. BETASERC                           /00141801/ [Concomitant]
  7. FEMARA [Concomitant]
     Active Substance: LETROZOLE
     Dosage: 2.5 MG, UNKNOWN

REACTIONS (4)
  - Fall [Recovered/Resolved]
  - Craniocerebral injury [Recovered/Resolved]
  - General physical health deterioration [Unknown]
  - Hypoglycaemia [Recovered/Resolved]

NARRATIVE: CASE EVENT DATE: 201405
